FAERS Safety Report 21813086 (Version 2)
Quarter: 2023Q1

REPORT INFORMATION
  Report Type: Spontaneous
  Country: IR (occurrence: IR)
  Receive Date: 20230103
  Receipt Date: 20230201
  Transmission Date: 20230417
  Serious: Yes (Other)
  Sender: FDA-Public Use
  Company Number: IR-AMERICAN REGENT INC-2022003681

PATIENT
  Age: 55 Year
  Sex: Female

DRUGS (1)
  1. FERINJECT [Suspect]
     Active Substance: FERRIC CARBOXYMALTOSE
     Indication: Iron deficiency anaemia
     Dosage: 500 MG OVER 30 MINS,1 IN 1 WK: THE PATIENT HAD RECEIVED TOTAL 4 VIALS OF FERINJECT (TOTAL DOSE 2 GM)
     Dates: start: 202209, end: 202210

REACTIONS (2)
  - Hysterectomy [Not Recovered/Not Resolved]
  - Serum ferritin increased [Not Recovered/Not Resolved]

NARRATIVE: CASE EVENT DATE: 20221201
